FAERS Safety Report 6348591-8 (Version None)
Quarter: 2009Q3

REPORT INFORMATION
  Report Type: 
  Country: None (occurrence: None)
  Receive Date: 20090911
  Receipt Date: 20090827
  Transmission Date: 20100115
  Serious: Yes (Hospitalization)
  Sender: FDA-Public Use
  Company Number: US-ROCHE-652880

PATIENT
  Sex: Male

DRUGS (7)
  1. PEG-INTERFERON ALFA 2A (RO 25-8310) [Suspect]
     Dosage: FORM: INJECTION
     Route: 058
     Dates: start: 20090330
  2. RIBAVIRIN [Suspect]
     Route: 048
     Dates: start: 20090330
  3. ELTROMBOPAG [Suspect]
     Indication: THROMBOCYTOPENIA
     Route: 048
     Dates: start: 20090309, end: 20090323
  4. ELTROMBOPAG [Suspect]
     Route: 048
     Dates: start: 20090324, end: 20090329
  5. BLINDED ELTROMBOPAG [Suspect]
     Indication: THROMBOCYTOPENIA
     Dosage: DOSE BLINDED,
     Route: 048
     Dates: start: 20090330
  6. AZITHROMYCIN [Concomitant]
     Dates: start: 20090818
  7. DIAZEPAM [Concomitant]
     Dates: start: 20090818

REACTIONS (1)
  - PERICARDITIS [None]
